FAERS Safety Report 14454706 (Version 5)
Quarter: 2019Q1

REPORT INFORMATION
  Report Type: Spontaneous
  Country: US (occurrence: US)
  Receive Date: 20180129
  Receipt Date: 20190319
  Transmission Date: 20190417
  Serious: Yes (Hospitalization, Other)
  Sender: FDA-Public Use
  Company Number: US-DSJP-DSU-2017-138650

PATIENT

DRUGS (2)
  1. BENICAR HCT [Suspect]
     Active Substance: HYDROCHLOROTHIAZIDE\OLMESARTAN MEDOXOMIL
     Indication: HYPERTENSION
     Dosage: 20/12.5 MG, UNK
     Dates: start: 20050101, end: 20120301
  2. BENICAR HCT [Suspect]
     Active Substance: HYDROCHLOROTHIAZIDE\OLMESARTAN MEDOXOMIL
     Dosage: 40/12.5 MG, QD
     Route: 048
     Dates: start: 20070328

REACTIONS (9)
  - Constipation [Unknown]
  - Sprue-like enteropathy [Recovering/Resolving]
  - Large intestine polyp [Recovered/Resolved]
  - Cholecystitis chronic [Unknown]
  - Dizziness [Unknown]
  - Renal failure [Recovered/Resolved]
  - Coeliac disease [Recovering/Resolving]
  - Acute hepatic failure [Unknown]
  - Haemorrhoids [Unknown]

NARRATIVE: CASE EVENT DATE: 20100101
